FAERS Safety Report 10172737 (Version 1)
Quarter: 2014Q2

REPORT INFORMATION
  Report Type: Spontaneous
  Country: US (occurrence: US)
  Receive Date: 20140515
  Receipt Date: 20140515
  Transmission Date: 20141212
  Serious: Yes (Hospitalization)
  Sender: FDA-Public Use
  Company Number: US-ROCHE-1397586

PATIENT
  Age: 46 Year
  Sex: Female
  Weight: 95.34 kg

DRUGS (5)
  1. XOLAIR [Suspect]
     Indication: ASTHMA
     Dosage: Q2
     Route: 058
     Dates: end: 20140411
  2. FLONASE [Concomitant]
  3. ADVAIR [Concomitant]
  4. VENTOLIN [Concomitant]
  5. SINGULAIR [Concomitant]

REACTIONS (4)
  - Flushing [Recovering/Resolving]
  - Rash [Recovering/Resolving]
  - Hypertension [Recovering/Resolving]
  - Paraesthesia oral [Recovering/Resolving]
